FAERS Safety Report 26209609 (Version 1)
Quarter: 2025Q4

REPORT INFORMATION
  Report Type: Spontaneous
  Country: US (occurrence: US)
  Receive Date: 20251229
  Receipt Date: 20251229
  Transmission Date: 20260118
  Serious: No
  Sender: GILEAD
  Company Number: US-GILEAD-2025-0740494

PATIENT
  Age: 40 Year
  Sex: Male

DRUGS (3)
  1. YEZTUGO [Suspect]
     Active Substance: LENACAPAVIR SODIUM
     Indication: Product used for unknown indication
     Dosage: UNK
     Route: 065
     Dates: start: 20251013
  2. YEZTUGO [Suspect]
     Active Substance: LENACAPAVIR SODIUM
     Indication: Product used for unknown indication
     Dosage: UNK
     Route: 065
     Dates: start: 20251013
  3. HUMIRA [Concomitant]
     Active Substance: ADALIMUMAB

REACTIONS (12)
  - Pain in extremity [Unknown]
  - Swelling [Unknown]
  - Chills [Unknown]
  - Decreased appetite [Unknown]
  - Pyrexia [Unknown]
  - Hyperhidrosis [Unknown]
  - Rash [Recovered/Resolved]
  - Musculoskeletal disorder [Not Recovered/Not Resolved]
  - Myalgia [Not Recovered/Not Resolved]
  - Tenderness [Unknown]
  - Muscle tightness [Unknown]
  - Mass [Unknown]

NARRATIVE: CASE EVENT DATE: 20251209
